FAERS Safety Report 6917728-1 (Version None)
Quarter: 2010Q3

REPORT INFORMATION
  Report Type: 
  Country: None (occurrence: None)
  Receive Date: 20100806
  Receipt Date: 20100626
  Transmission Date: 20110219
  Serious: Yes (Hospitalization)
  Sender: FDA-Public Use
  Company Number: NL-DEXPHARM-20101126

PATIENT
  Age: 62 Year
  Sex: Female

DRUGS (2)
  1. OMEPRAZOLE [Suspect]
     Indication: BARRETT'S OESOPHAGUS
     Dosage: DOSE: 40 MG MILLIGRAM(S) SEP. DOSAGES / INTERVAL: 1 IN 1 DAY
  2. RABEPRAZOLE SODIUM [Suspect]

REACTIONS (8)
  - DIARRHOEA [None]
  - ELECTROCARDIOGRAM QT PROLONGED [None]
  - ELECTROCARDIOGRAM ST SEGMENT DEPRESSION [None]
  - GIARDIASIS [None]
  - HYPOCALCAEMIA [None]
  - HYPOKALAEMIA [None]
  - HYPOMAGNESAEMIA [None]
  - LYMPHANGIECTASIA INTESTINAL [None]
